FAERS Safety Report 9536329 (Version 1)
Quarter: 2013Q3

REPORT INFORMATION
  Report Type: Spontaneous
  Country: US (occurrence: None)
  Receive Date: 20130917
  Receipt Date: 20130917
  Transmission Date: 20140515
  Serious: Yes (Hospitalization, Other)
  Sender: FDA-Public Use
  Company Number: None

PATIENT
  Age: 4 Year
  Sex: Male
  Weight: 23 kg

DRUGS (2)
  1. FENTANYL [Suspect]
     Indication: INDUCTION OF ANAESTHESIA
     Dates: start: 20130905, end: 20130905
  2. SEVOFLURANE [Suspect]
     Indication: INDUCTION OF ANAESTHESIA

REACTIONS (3)
  - Pulmonary oedema [None]
  - Mechanical ventilation complication [None]
  - Respiratory failure [None]
